FAERS Safety Report 24956632 (Version 1)
Quarter: 2025Q1

REPORT INFORMATION
  Report Type: Spontaneous
  Country: TN (occurrence: TN)
  Receive Date: 20250211
  Receipt Date: 20250211
  Transmission Date: 20250408
  Serious: Yes (Other)
  Sender: DEVA
  Company Number: TN-DEVA-2025-TN-000001

PATIENT
  Age: 22 Year
  Sex: Female

DRUGS (3)
  1. CHLORPROMAZINE HYDROCHLORIDE [Suspect]
     Active Substance: CHLORPROMAZINE HYDROCHLORIDE
     Indication: Schizophrenia
     Route: 030
  2. HALOPERIDOL [Suspect]
     Active Substance: HALOPERIDOL
     Indication: Schizophrenia
  3. DIAZEPAM [Concomitant]
     Active Substance: DIAZEPAM
     Route: 030

REACTIONS (2)
  - Hepatic cytolysis [Unknown]
  - Oedema [Unknown]
